FAERS Safety Report 8498820-X (Version None)
Quarter: 2012Q3

REPORT INFORMATION
  Report Type: 
  Country: None (occurrence: None)
  Receive Date: 20120710
  Receipt Date: 20120626
  Transmission Date: 20120928
  Serious: Yes (Death, Hospitalization)
  Sender: FDA-Public Use
  Company Number: US-PAR PHARMACEUTICAL, INC-2012SCPR004451

PATIENT

DRUGS (9)
  1. COLACE [Concomitant]
     Indication: PRODUCT USED FOR UNKNOWN INDICATION
     Dosage: 100 MG, BID
     Route: 065
  2. MEGACE ES [Suspect]
     Indication: DECREASED APPETITE
     Dosage: 625 MG/ 5 ML, ONCE DAILY
     Route: 048
     Dates: start: 20120515, end: 20120606
  3. TRAMADOL HCL [Suspect]
     Indication: PRODUCT USED FOR UNKNOWN INDICATION
     Dosage: 50 MG, TID
     Route: 065
  4. NIFEREX [Concomitant]
     Indication: PRODUCT USED FOR UNKNOWN INDICATION
     Dosage: 150 MG, BID
     Route: 065
  5. MEGACE ES [Suspect]
     Indication: CACHEXIA
  6. CALCIUM REPLACEMENT [Concomitant]
     Indication: PRODUCT USED FOR UNKNOWN INDICATION
     Dosage: 500/200MG BID
     Route: 065
  7. MEGACE ES [Suspect]
     Indication: WEIGHT DECREASED
  8. PRILOSEC [Concomitant]
     Indication: PRODUCT USED FOR UNKNOWN INDICATION
     Dosage: 20 MG, DAILY
     Route: 065
  9. LISINOPRIL [Concomitant]
     Indication: PRODUCT USED FOR UNKNOWN INDICATION
     Dosage: 5 MG, BID
     Route: 065

REACTIONS (4)
  - UNRESPONSIVE TO STIMULI [None]
  - ENDOMETRITIS [None]
  - MENTAL STATUS CHANGES [None]
  - DEATH [None]
